FAERS Safety Report 25968402 (Version 1)
Quarter: 2025Q4

REPORT INFORMATION
  Report Type: Spontaneous
  Country: EU (occurrence: EU)
  Receive Date: 20251028
  Receipt Date: 20251028
  Transmission Date: 20260118
  Serious: Yes (Other)
  Sender: RANBAXY
  Company Number: EU-DKMA-ADR 26933270

PATIENT
  Age: 21 Year
  Sex: Female

DRUGS (4)
  1. SERTRALINE [Suspect]
     Active Substance: SERTRALINE HYDROCHLORIDE
     Indication: Schizophrenia
     Dosage: FROM 03FEB2020 TO 11FEB2020, THE PATIENT WAS TREATED WITH 100 MG AS NECESSARY. AFTER 11FEB2020, THE
     Route: 065
     Dates: start: 20200203, end: 2020
  2. INVEGA [Suspect]
     Active Substance: PALIPERIDONE
     Indication: Schizophrenia
     Dosage: FROM 12NOV2019 TO 03FEB2020 THE PATIENT WAS TREATED WITH 9 MG ONCE A DAY. AFTER 03FEB2020, THE PATIE
     Route: 048
     Dates: start: 20191112, end: 2020
  3. MELATONIN [Suspect]
     Active Substance: MELATONIN
     Indication: Schizophrenia
     Dosage: A RELATIVE TO THE PATIENT STATES THAT THE PATIENT^S TREATMENT WAS NOT REDUCED BEFORE THE TREATMENT W
     Route: 065
     Dates: start: 20200203, end: 2020
  4. OXAZEPAM [Suspect]
     Active Substance: OXAZEPAM
     Indication: Schizophrenia
     Dosage: A RELATIVE TO THE PATIENT STATES THAT THE PATIENT^S TREATMENT WAS NOT REDUCED BEFORE THE TREATMENT W
     Route: 065
     Dates: start: 20200203, end: 2020

REACTIONS (6)
  - Diabetes mellitus [Unknown]
  - Weight increased [Recovered/Resolved]
  - Blood creatine phosphokinase increased [Recovering/Resolving]
  - Drug withdrawal syndrome [Unknown]
  - Renal function test abnormal [Recovered/Resolved]
  - Hepatic enzyme increased [Recovering/Resolving]

NARRATIVE: CASE EVENT DATE: 20200101
